FAERS Safety Report 8734287 (Version 3)
Quarter: 2014Q2

REPORT INFORMATION
  Report Type: Spontaneous
  Country: IT (occurrence: IT)
  Receive Date: 20120821
  Receipt Date: 20140423
  Transmission Date: 20141212
  Serious: Yes (Life-Threatening, Other)
  Sender: FDA-Public Use
  Company Number: IT-BAYER-2012-083517

PATIENT
  Age: 19 Year
  Sex: Male

DRUGS (4)
  1. ANTIHEMOPHILIC FACTOR VIII (RECOMBINANT), SUCROSE FORMULATED [Suspect]
     Indication: ACTIVATED PARTIAL THROMBOPLASTIN TIME PROLONGED
     Dosage: UNK
     Route: 042
  2. ANTIHEMOPHILIC FACTOR VIII (RECOMBINANT), SUCROSE FORMULATED [Suspect]
     Indication: SPLENIC RUPTURE
  3. REFACTO [MOROCTOCOG ALFA] [Suspect]
     Indication: ACTIVATED PARTIAL THROMBOPLASTIN TIME PROLONGED
     Dosage: DURING SURGERY AND 7 DAYS (TOTAL DOSE: 18000
     Route: 042
     Dates: start: 20111002
  4. REFACTO [MOROCTOCOG ALFA] [Suspect]
     Indication: SPLENIC RUPTURE
     Dosage: UNK
     Route: 042

REACTIONS (10)
  - Shock haemorrhagic [Recovered/Resolved]
  - Anti factor VIII antibody positive [Recovered/Resolved]
  - Activated partial thromboplastin time prolonged [Recovered/Resolved]
  - Haematoma [Recovered/Resolved]
  - Anaemia [Recovered/Resolved]
  - Haemoglobin decreased [Recovered/Resolved]
  - Compartment syndrome [Recovered/Resolved]
  - Hypotension [None]
  - Chest pain [None]
  - Vision blurred [None]
